FAERS Safety Report 14851258 (Version 2)
Quarter: 2018Q2

REPORT INFORMATION
  Report Type: Spontaneous
  Country: US (occurrence: US)
  Receive Date: 20180507
  Receipt Date: 20180515
  Transmission Date: 20180711
  Serious: No
  Sender: FDA-Public Use
  Company Number: US-CELGENEUS-USA-20180500184

PATIENT
  Age: 84 Year
  Sex: Female

DRUGS (2)
  1. OTEZLA [Suspect]
     Active Substance: APREMILAST
     Dosage: TITRATION PACK
     Route: 048
     Dates: start: 2018
  2. OTEZLA [Suspect]
     Active Substance: APREMILAST
     Indication: PSORIASIS
     Dosage: 60 MILLIGRAM
     Route: 048
     Dates: start: 20180216

REACTIONS (6)
  - Dyspnoea [Recovered/Resolved]
  - Anxiety [Unknown]
  - Productive cough [Unknown]
  - Swollen tongue [Unknown]
  - Incorrect dose administered [Unknown]
  - Lip swelling [Unknown]

NARRATIVE: CASE EVENT DATE: 2018
